FAERS Safety Report 17858590 (Version 2)
Quarter: 2020Q2

REPORT INFORMATION
  Report Type: Report from Study
  Country: None (occurrence: US)
  Receive Date: 20200604
  Receipt Date: 20200605
  Transmission Date: 20200714
  Serious: No
  Sender: FDA-Public Use
  Company Number: US-US WORLDMEDS, LLC-USW201911-002136

PATIENT
  Age: 70 Year
  Sex: Male

DRUGS (4)
  1. RIVASTIGMINE. [Concomitant]
     Active Substance: RIVASTIGMINE
  2. CARBIDOPA/LEVADOPA [Concomitant]
     Active Substance: CARBIDOPA\LEVODOPA
  3. PRAMIPREXOLE [Concomitant]
     Active Substance: PRAMIPEXOLE
  4. APOKYN [Suspect]
     Active Substance: APOMORPHINE HYDROCHLORIDE
     Indication: PARKINSON^S DISEASE
     Dosage: STRENGTH: 30MG/3ML
     Route: 058
     Dates: start: 20190803, end: 20191016

REACTIONS (3)
  - Nausea [Recovered/Resolved]
  - Abdominal discomfort [Unknown]
  - Salivary hypersecretion [Recovered/Resolved]

NARRATIVE: CASE EVENT DATE: 20191015
